FAERS Safety Report 9940993 (Version 2)
Quarter: 2014Q1

REPORT INFORMATION
  Report Type: Spontaneous
  Country: US (occurrence: US)
  Receive Date: 20140303
  Receipt Date: 20140303
  Transmission Date: 20141002
  Serious: Yes (Life-Threatening, Hospitalization)
  Sender: FDA-Public Use
  Company Number: US-CELGENEUS-163-21880-14010181

PATIENT
  Age: 75 Year
  Sex: Female

DRUGS (6)
  1. REVLIMID [Suspect]
     Indication: PLASMA CELL MYELOMA
     Dosage: 25 MILLIGRAM
     Route: 048
     Dates: start: 20131217
  2. LYRICA [Concomitant]
     Indication: NEURALGIA
     Dosage: 50 MILLIGRAM
     Route: 065
  3. IVIG [Concomitant]
     Indication: HYPOGAMMAGLOBULINAEMIA
     Route: 065
  4. LEXAPRO [Concomitant]
     Indication: DEPRESSION
     Dosage: 20 GRAM
     Route: 065
  5. COUMADIN [Concomitant]
     Indication: PULMONARY EMBOLISM
     Dosage: 5 MILLIGRAM
     Route: 048
  6. OXYCONTIN [Concomitant]
     Indication: PRODUCT USED FOR UNKNOWN INDICATION
     Dosage: 20 MILLIGRAM
     Route: 048

REACTIONS (1)
  - Renal failure acute [Recovered/Resolved]
